FAERS Safety Report 5847716-8 (Version None)
Quarter: 2008Q3

REPORT INFORMATION
  Report Type: 
  Country: None (occurrence: None)
  Receive Date: 20080815
  Receipt Date: 20080815
  Transmission Date: 20090109
  Serious: Yes (Disabling)
  Sender: FDA-Public Use
  Company Number: None

PATIENT
  Sex: Female

DRUGS (3)
  1. CIPROFLOXACIN [Suspect]
     Indication: SKIN CANCER
     Dosage: AUGUST 06-2007 20 TABS REFILLED SEPT. 04-2007 24 TABS REFILLED FEB. 11-2008 40 TABS
     Dates: start: 20070806
  2. CIPROFLOXACIN [Suspect]
     Indication: SKIN CANCER
     Dosage: AUGUST 06-2007 20 TABS REFILLED SEPT. 04-2007 24 TABS REFILLED FEB. 11-2008 40 TABS
     Dates: start: 20070904
  3. CIPROFLOXACIN [Suspect]
     Indication: SKIN CANCER
     Dosage: AUGUST 06-2007 20 TABS REFILLED SEPT. 04-2007 24 TABS REFILLED FEB. 11-2008 40 TABS
     Dates: start: 20080211

REACTIONS (1)
  - TENDON RUPTURE [None]
